FAERS Safety Report 9278993 (Version 1)
Quarter: 2013Q2

REPORT INFORMATION
  Report Type: Report from Study
  Country: BR (occurrence: BR)
  Receive Date: 20130508
  Receipt Date: 20130508
  Transmission Date: 20140414
  Serious: Yes (Other)
  Sender: FDA-Public Use
  Company Number: BR-GLAXOSMITHKLINE-B0889111A

PATIENT
  Age: 35 Year
  Sex: Female

DRUGS (1)
  1. RETIGABINE [Suspect]
     Indication: PARTIAL SEIZURES
     Dosage: 1200MG PER DAY
     Route: 048
     Dates: start: 20130128

REACTIONS (2)
  - Retinal degeneration [Unknown]
  - Skin discolouration [Unknown]
